FAERS Safety Report 23913320 (Version 1)
Quarter: 2024Q2

REPORT INFORMATION
  Report Type: Spontaneous
  Country: NL (occurrence: NL)
  Receive Date: 20240529
  Receipt Date: 20240529
  Transmission Date: 20240716
  Serious: Yes (Death, Hospitalization, Other)
  Sender: FDA-Public Use
  Company Number: NL-ALKEM LABORATORIES LIMITED-NL-ALKEM-2024-11037

PATIENT

DRUGS (4)
  1. AZATHIOPRINE [Suspect]
     Active Substance: AZATHIOPRINE
     Indication: Sickle cell disease
     Dosage: 150 MILLIGRAM, QD
     Route: 065
  2. SIROLIMUS [Suspect]
     Active Substance: SIROLIMUS
     Indication: Sickle cell disease
     Dosage: UNK
     Route: 065
  3. HYDROXYUREA [Concomitant]
     Active Substance: HYDROXYUREA
     Indication: Sickle cell disease
     Dosage: 25 MILLIGRAM/KILOGRAM, QD
     Route: 065
  4. ALEMTUZUMAB [Concomitant]
     Active Substance: ALEMTUZUMAB
     Indication: Product used for unknown indication
     Dosage: 1 MILLIGRAM/KILOGRAM
     Route: 065

REACTIONS (4)
  - Post transplant lymphoproliferative disorder [Fatal]
  - Transplant rejection [Fatal]
  - Epstein-Barr virus infection reactivation [Fatal]
  - Aspergillus infection [Fatal]
